FAERS Safety Report 7755135-2 (Version None)
Quarter: 2011Q3

REPORT INFORMATION
  Report Type: 
  Country: None (occurrence: None)
  Receive Date: 20110916
  Receipt Date: 20110912
  Transmission Date: 20111222
  Serious: No
  Sender: FDA-Public Use
  Company Number: US-PFIZER INC-2011215604

PATIENT
  Sex: Female
  Weight: 51.247 kg

DRUGS (2)
  1. PREMPRO [Suspect]
     Indication: HOT FLUSH
     Dosage: 0.625/2.5 MG
     Route: 048
     Dates: start: 19950101
  2. ESTRADIOL [Suspect]
     Indication: HOT FLUSH
     Dosage: 0.5 MG, UNK
     Route: 048
     Dates: start: 20110808, end: 20110801

REACTIONS (2)
  - INAPPROPRIATE SCHEDULE OF DRUG ADMINISTRATION [None]
  - HOT FLUSH [None]
